FAERS Safety Report 22231091 (Version 1)
Quarter: 2023Q2

REPORT INFORMATION
  Report Type: Spontaneous
  Country: US (occurrence: None)
  Receive Date: 20230420
  Receipt Date: 20230420
  Transmission Date: 20230721
  Serious: No
  Sender: FDA-Public Use
  Company Number: US-ROCHE-3101995

PATIENT
  Sex: Female

DRUGS (1)
  1. KADCYLA [Suspect]
     Active Substance: ADO-TRASTUZUMAB EMTANSINE
     Indication: Breast cancer female
     Route: 042

REACTIONS (5)
  - Nausea [Unknown]
  - Dysphagia [Unknown]
  - Fatigue [Unknown]
  - Malaise [Unknown]
  - Loss of personal independence in daily activities [Unknown]
